FAERS Safety Report 7481957-1 (Version None)
Quarter: 2011Q2

REPORT INFORMATION
  Report Type: 
  Country: None (occurrence: None)
  Receive Date: 20110516
  Receipt Date: 20110510
  Transmission Date: 20111010
  Serious: Yes (Hospitalization, Other)
  Sender: FDA-Public Use
  Company Number: DE-ABBOTT-11P-062-0703456-00

PATIENT
  Age: 39 Year
  Sex: Female

DRUGS (20)
  1. METHOTREXATE [Concomitant]
  2. SASP [Concomitant]
     Indication: PRODUCT USED FOR UNKNOWN INDICATION
     Dates: start: 20060501, end: 20060701
  3. CIPRAMIL 20 MG [Concomitant]
     Indication: PRODUCT USED FOR UNKNOWN INDICATION
  4. METHOTREXATE [Concomitant]
     Indication: PRODUCT USED FOR UNKNOWN INDICATION
  5. FOLIC ACID 20 MG [Concomitant]
     Indication: PRODUCT USED FOR UNKNOWN INDICATION
     Dosage: FRIDAYS
  6. PANTOPRAZOLE [Concomitant]
     Indication: PRODUCT USED FOR UNKNOWN INDICATION
  7. MTX [Concomitant]
     Indication: PRODUCT USED FOR UNKNOWN INDICATION
     Dosage: PER OS, THURSDAYS
     Dates: start: 20050601
  8. PREDNISOLONE [Concomitant]
     Indication: PRODUCT USED FOR UNKNOWN INDICATION
  9. OXYGESIC 10 MG [Concomitant]
     Indication: PRODUCT USED FOR UNKNOWN INDICATION
  10. METHOTREXATE [Concomitant]
  11. LEFLUNOMIDE [Concomitant]
  12. CIPRO [Concomitant]
     Indication: PRODUCT USED FOR UNKNOWN INDICATION
  13. DICLOFENAC 75 MG [Concomitant]
     Indication: PRODUCT USED FOR UNKNOWN INDICATION
  14. HUMIRA [Suspect]
     Route: 058
     Dates: start: 20100201
  15. METHOTREXATE [Concomitant]
  16. HUMIRA [Suspect]
     Indication: RHEUMATOID ARTHRITIS
     Route: 058
     Dates: start: 20050601, end: 20051201
  17. LEFLUNOMIDE [Concomitant]
     Indication: PRODUCT USED FOR UNKNOWN INDICATION
     Dates: start: 20050901
  18. HCQ/CQ [Concomitant]
     Indication: PRODUCT USED FOR UNKNOWN INDICATION
     Dates: start: 20060501, end: 20060701
  19. TILIDIN 50/4 RET [Concomitant]
     Indication: PRODUCT USED FOR UNKNOWN INDICATION
  20. NOVAMINSULFON 500 MG QID [Concomitant]
     Indication: PRODUCT USED FOR UNKNOWN INDICATION

REACTIONS (19)
  - FOOT DEFORMITY [None]
  - IMPAIRED HEALING [None]
  - MUSCULAR WEAKNESS [None]
  - JOINT RANGE OF MOTION DECREASED [None]
  - SKIN MACERATION [None]
  - HYPERTHERMIA [None]
  - TENOSYNOVITIS [None]
  - TREATMENT NONCOMPLIANCE [None]
  - PAIN [None]
  - RHEUMATOID NODULE [None]
  - PERIPHERAL COLDNESS [None]
  - ARTHRODESIS [None]
  - PAIN IN EXTREMITY [None]
  - SINUSITIS [None]
  - OEDEMA PERIPHERAL [None]
  - ARTHRALGIA [None]
  - OSTEOARTHRITIS [None]
  - LIVIDITY [None]
  - MUSCULOSKELETAL STIFFNESS [None]
